FAERS Safety Report 10006710 (Version 1)
Quarter: 2014Q1

REPORT INFORMATION
  Report Type: Spontaneous
  Country: US (occurrence: US)
  Receive Date: 20140313
  Receipt Date: 20140313
  Transmission Date: 20141002
  Serious: No
  Sender: FDA-Public Use
  Company Number: US-BAYER-2014-036263

PATIENT
  Sex: Female

DRUGS (1)
  1. MIRENA [Suspect]
     Dosage: 20 ?G/D, CONT
     Route: 015

REACTIONS (7)
  - Rash [Not Recovered/Not Resolved]
  - Swelling face [Not Recovered/Not Resolved]
  - Eye swelling [Not Recovered/Not Resolved]
  - Weight increased [Not Recovered/Not Resolved]
  - Constipation [Not Recovered/Not Resolved]
  - Headache [Not Recovered/Not Resolved]
  - Uterine pain [Not Recovered/Not Resolved]
